FAERS Safety Report 21102952 (Version 3)
Quarter: 2022Q3

REPORT INFORMATION
  Report Type: Spontaneous
  Country: US (occurrence: US)
  Receive Date: 20220720
  Receipt Date: 20220815
  Transmission Date: 20221026
  Serious: No
  Sender: FDA-Public Use
  Company Number: US-JNJFOC-20220726412

PATIENT
  Sex: Female

DRUGS (2)
  1. STELARA [Suspect]
     Active Substance: USTEKINUMAB
     Indication: Product used for unknown indication
     Route: 058
     Dates: start: 202111, end: 20220406
  2. STELARA [Suspect]
     Active Substance: USTEKINUMAB

REACTIONS (1)
  - Drug ineffective [Unknown]
